FAERS Safety Report 16297254 (Version 1)
Quarter: 2019Q2

REPORT INFORMATION
  Report Type: Spontaneous
  Country: CA (occurrence: CA)
  Receive Date: 20190510
  Receipt Date: 20190510
  Transmission Date: 20190711
  Serious: Yes (Life-Threatening)
  Sender: FDA-Public Use
  Company Number: CA-TEVA-2019-CA-1046407

PATIENT
  Age: 62 Year
  Sex: Female
  Weight: 75 kg

DRUGS (4)
  1. BENADRYL [Concomitant]
     Active Substance: DIPHENHYDRAMINE HYDROCHLORIDE
     Dosage: FORM OF ADMIN: NOT SPECIFIED
  2. PACLITAXEL INJECTION [Suspect]
     Active Substance: PACLITAXEL
     Dosage: LIQUID INTRAVENOUS
     Route: 040
  3. RANITIDINE. [Concomitant]
     Active Substance: RANITIDINE
     Dosage: FORM OF ADMIN: NOT SPECIFIED
  4. DEXAMETHASONE. [Concomitant]
     Active Substance: DEXAMETHASONE
     Dosage: FORM OF ADMIN: NOT SPECIFIED

REACTIONS (2)
  - Chest discomfort [Unknown]
  - Throat tightness [Unknown]
